FAERS Safety Report 5525687-1 (Version None)
Quarter: 2007Q4

REPORT INFORMATION
  Report Type: 
  Country: None (occurrence: None)
  Receive Date: 20071126
  Receipt Date: 20071120
  Transmission Date: 20080405
  Serious: Yes (Other)
  Sender: FDA-Public Use
  Company Number: US-MERCK-0711USA01700

PATIENT
  Age: 75 Year
  Sex: Male
  Weight: 95 kg

DRUGS (13)
  1. JANUVIA [Suspect]
     Indication: TYPE 2 DIABETES MELLITUS
     Route: 048
     Dates: start: 20071001, end: 20071003
  2. LIPITOR [Concomitant]
     Route: 065
  3. GLIMEPIRIDE [Concomitant]
     Route: 065
  4. FLOMAX (MORNIFLUMATE) [Concomitant]
     Route: 065
  5. FUROSEMIDE [Concomitant]
     Route: 065
  6. SYNTHROID [Concomitant]
     Route: 065
  7. ALLOPURINOL [Concomitant]
     Route: 065
  8. COLCHICINE [Concomitant]
     Route: 065
  9. PAROXETINE [Concomitant]
     Route: 065
  10. TOPROL-XL [Concomitant]
     Route: 065
  11. ENABLEX [Concomitant]
     Route: 065
  12. K-DUR 10 [Concomitant]
     Route: 065
  13. FOLBEE [Concomitant]
     Route: 065

REACTIONS (4)
  - CHILLS [None]
  - HYPERSENSITIVITY [None]
  - PYREXIA [None]
  - RASH MACULAR [None]
